FAERS Safety Report 7723886-1 (Version None)
Quarter: 2011Q3

REPORT INFORMATION
  Report Type: 
  Country: None (occurrence: None)
  Receive Date: 20110901
  Receipt Date: 20110823
  Transmission Date: 20111222
  Serious: Yes (Hospitalization, Other)
  Sender: FDA-Public Use
  Company Number: AU-NAPPMUNDI-GBR-2011-0008728

PATIENT
  Age: 83 Year
  Sex: Female

DRUGS (3)
  1. PROPOFOL [Concomitant]
     Indication: SEDATION
     Dosage: 50 MG, SINGLE
  2. MORPHINE SULFATE [Suspect]
     Indication: PREMEDICATION
     Dosage: 2.5 MG, SINGLE
  3. FENTANYL [Concomitant]
     Indication: SEDATION
     Dosage: 50 MCG, SINGLE

REACTIONS (4)
  - OXYGEN SATURATION DECREASED [None]
  - HYPOVENTILATION [None]
  - OBSTRUCTIVE AIRWAYS DISORDER [None]
  - ANAESTHETIC COMPLICATION PULMONARY [None]
